FAERS Safety Report 6426814-4 (Version None)
Quarter: 2009Q4

REPORT INFORMATION
  Report Type: 
  Country: None (occurrence: None)
  Receive Date: 20091103
  Receipt Date: 20091103
  Transmission Date: 20100525
  Serious: Yes (Other)
  Sender: FDA-Public Use
  Company Number: None

PATIENT
  Age: 57 Year
  Sex: Male
  Weight: 106.5 kg

DRUGS (1)
  1. CYANOCOBALAMIN [Suspect]
     Dosage: OTHER PO
     Route: 048
     Dates: start: 20090722, end: 20090722

REACTIONS (5)
  - HYPERSENSITIVITY [None]
  - PRURITUS [None]
  - RASH [None]
  - RESPIRATORY DEPRESSION [None]
  - URTICARIA [None]
